FAERS Safety Report 10197158 (Version 2)
Quarter: 2014Q3

REPORT INFORMATION
  Report Type: Spontaneous
  Country: US (occurrence: US)
  Receive Date: 20140527
  Receipt Date: 20140917
  Transmission Date: 20150326
  Serious: Yes (Hospitalization)
  Sender: FDA-Public Use
  Company Number: US-GLAXOSMITHKLINE-A0739906A

PATIENT
  Age: 65 Year
  Sex: Male

DRUGS (14)
  1. REQUIP [Suspect]
     Active Substance: ROPINIROLE HYDROCHLORIDE
     Indication: RESTLESS LEGS SYNDROME
     Dosage: 2MG TWICE PER DAY
     Route: 048
  2. METFORMIN [Concomitant]
     Active Substance: METFORMIN HYDROCHLORIDE
  3. REQUIP XL [Suspect]
     Active Substance: ROPINIROLE HYDROCHLORIDE
     Indication: RESTLESS LEGS SYNDROME
     Dosage: 2MG PER DAY
     Route: 048
     Dates: start: 20080723, end: 20080724
  4. VITAMINS [Concomitant]
     Active Substance: VITAMINS
  5. LASIX [Concomitant]
     Active Substance: FUROSEMIDE
  6. ROPINIROLE. [Suspect]
     Active Substance: ROPINIROLE
     Indication: RESTLESS LEGS SYNDROME
     Dosage: 1MG PER DAY
     Route: 048
  7. JANUVIA [Concomitant]
     Active Substance: SITAGLIPTIN PHOSPHATE
  8. PLAVIX [Concomitant]
     Active Substance: CLOPIDOGREL BISULFATE
  9. AVODART [Suspect]
     Active Substance: DUTASTERIDE
     Indication: BENIGN PROSTATIC HYPERPLASIA
     Dosage: .5MG PER DAY
     Route: 048
     Dates: start: 20091111, end: 20091111
  10. BABY ASA [Concomitant]
     Active Substance: ASPIRIN
  11. FLOMAX [Concomitant]
     Active Substance: TAMSULOSIN HYDROCHLORIDE
  12. FINASTERIDE. [Concomitant]
     Active Substance: FINASTERIDE
  13. LIPITOR [Concomitant]
     Active Substance: ATORVASTATIN CALCIUM
  14. AMARYL [Concomitant]
     Active Substance: GLIMEPIRIDE

REACTIONS (12)
  - Drug interaction [Unknown]
  - Chondropathy [Unknown]
  - Product substitution issue [None]
  - Ill-defined disorder [Not Recovered/Not Resolved]
  - Cardiac disorder [Unknown]
  - Nausea [Not Recovered/Not Resolved]
  - Therapeutic response decreased [Unknown]
  - Tremor [Unknown]
  - Drug ineffective [Unknown]
  - Condition aggravated [None]
  - Restless legs syndrome [Not Recovered/Not Resolved]
  - Arthroscopy [Unknown]

NARRATIVE: CASE EVENT DATE: 20080723
